FAERS Safety Report 14478678 (Version 3)
Quarter: 2018Q1

REPORT INFORMATION
  Report Type: Spontaneous
  Country: US (occurrence: US)
  Receive Date: 20180202
  Receipt Date: 20180227
  Transmission Date: 20180509
  Serious: No
  Sender: FDA-Public Use
  Company Number: US-BIOGEN-2018BI00516893

PATIENT
  Sex: Female

DRUGS (1)
  1. TECFIDERA [Suspect]
     Active Substance: DIMETHYL FUMARATE
     Indication: MULTIPLE SCLEROSIS
     Route: 065
     Dates: start: 20140731, end: 20150216

REACTIONS (6)
  - Frustration tolerance decreased [Unknown]
  - Feeling abnormal [Recovered/Resolved]
  - Cerebral atrophy [Unknown]
  - Tremor [Unknown]
  - Central nervous system lesion [Unknown]
  - Musculoskeletal disorder [Unknown]
